FAERS Safety Report 7877462-0 (Version None)
Quarter: 2011Q4

REPORT INFORMATION
  Report Type: 
  Country: None (occurrence: None)
  Receive Date: 20111031
  Receipt Date: 20111027
  Transmission Date: 20120403
  Serious: Yes (Other)
  Sender: FDA-Public Use
  Company Number: ES-PFIZER INC-2011261862

PATIENT
  Age: 43 Year
  Sex: Female

DRUGS (6)
  1. AMBISOME [Suspect]
     Indication: BRONCHOPULMONARY ASPERGILLOSIS
     Dosage: 250 MG DAILY
     Route: 042
     Dates: start: 20110320, end: 20110329
  2. AMIKACIN [Suspect]
     Indication: BRONCHOPULMONARY ASPERGILLOSIS
     Dosage: 500 MG DAILY
     Route: 042
     Dates: start: 20110320, end: 20110329
  3. MIDAZOLAM HYDROCHLORIDE [Concomitant]
     Indication: SEDATION
     Dosage: UNK
     Dates: start: 20110320
  4. CANCIDAS [Suspect]
     Indication: BRONCHOPULMONARY ASPERGILLOSIS
     Dosage: 50 MG DAILY
     Route: 042
     Dates: start: 20110320, end: 20110329
  5. ZYVOX [Suspect]
     Indication: BRONCHOPULMONARY ASPERGILLOSIS
     Dosage: 1.2 G TOTAL DAILY DOSE
     Route: 042
     Dates: start: 20110320, end: 20110329
  6. PIPERACILLIN AND TAZOBACTAM [Suspect]
     Indication: BRONCHOPULMONARY ASPERGILLOSIS
     Dosage: 12 MG DAILY DOSE
     Route: 042
     Dates: start: 20110320, end: 20110329

REACTIONS (1)
  - HYPOKALAEMIA [None]
